FAERS Safety Report 9810785 (Version 1)
Quarter: 2014Q1

REPORT INFORMATION
  Report Type: Spontaneous
  Country: US (occurrence: US)
  Receive Date: 20140110
  Receipt Date: 20140110
  Transmission Date: 20141002
  Serious: Yes (Hospitalization, Other)
  Sender: FDA-Public Use
  Company Number: US-SANOFI-AVENTIS-2012SA090576

PATIENT
  Age: 81 Year
  Sex: Male
  Weight: 75.8 kg

DRUGS (14)
  1. PLAVIX [Suspect]
     Indication: CORONARY ARTERY DISEASE
     Route: 065
     Dates: start: 20090610, end: 20100331
  2. ASPIRIN [Suspect]
     Indication: CORONARY ARTERY DISEASE
     Route: 065
     Dates: start: 20071111, end: 20100331
  3. ALTACE [Concomitant]
     Dates: start: 20090619
  4. CALCIUM [Concomitant]
     Dates: start: 20090619
  5. FOSAMAX [Concomitant]
     Dates: start: 20100210
  6. METOPROLOL [Concomitant]
     Dates: start: 20090803
  7. MULTIVITAMINS [Concomitant]
     Dates: start: 20090619
  8. PRILOSEC [Concomitant]
     Dates: start: 20071111, end: 20100331
  9. PRILOSEC [Concomitant]
     Dates: start: 20100402
  10. ZOCORD [Concomitant]
     Dates: start: 20071111, end: 20100331
  11. LASIX [Concomitant]
     Dates: start: 20100331, end: 20100401
  12. SALINE [Concomitant]
     Route: 042
     Dates: start: 20100331, end: 20100401
  13. PROTONIX [Concomitant]
     Dates: start: 20100331, end: 20100401
  14. PROTONIX [Concomitant]
     Dates: start: 20100401, end: 20100403

REACTIONS (4)
  - Oesophageal ulcer [Recovered/Resolved]
  - Upper gastrointestinal haemorrhage [Recovered/Resolved]
  - Haemorrhagic anaemia [Recovered/Resolved]
  - Duodenal ulcer [Recovered/Resolved]
